FAERS Safety Report 21098053 (Version 2)
Quarter: 2022Q3

REPORT INFORMATION
  Report Type: Report from Study
  Country: FR (occurrence: FR)
  Receive Date: 20220719
  Receipt Date: 20220801
  Transmission Date: 20221027
  Serious: Yes (Other)
  Sender: FDA-Public Use
  Company Number: FR-BRISTOL-MYERS SQUIBB COMPANY-2022-070971

PATIENT
  Age: 81 Year
  Sex: Female
  Weight: 55 kg

DRUGS (2)
  1. ROMIDEPSIN [Suspect]
     Active Substance: ROMIDEPSIN
     Indication: Angioimmunoblastic T-cell lymphoma
     Dosage: 10MG/M? AT DAY 1/DAY 15 AND TO  0 MG/M? AT DAY 8. NEXT CYCLE 10MG/M? AT DAY 1/DAY 15
     Route: 065
  2. ROMIDEPSIN [Suspect]
     Active Substance: ROMIDEPSIN
     Dosage: ON D1,D8, D15 OF EACH 28-DAY CYCLE?D1- 13-JUN-2022, D8- 20-06-2022, D15- 27-06-2022
     Route: 065
     Dates: start: 20211021

REACTIONS (1)
  - Electrocardiogram abnormal [Unknown]
